FAERS Safety Report 10634590 (Version 2)
Quarter: 2015Q1

REPORT INFORMATION
  Report Type: Spontaneous
  Country: US (occurrence: US)
  Receive Date: 20141205
  Receipt Date: 20150316
  Transmission Date: 20150720
  Serious: No
  Sender: FDA-Public Use
  Company Number: US-ASTELLAS-2014US016959

PATIENT
  Age: 70 Year
  Sex: Male

DRUGS (1)
  1. XTANDI [Suspect]
     Active Substance: ENZALUTAMIDE
     Indication: PRODUCT USED FOR UNKNOWN INDICATION
     Route: 065
     Dates: start: 20141024

REACTIONS (6)
  - Fatigue [Unknown]
  - Increased appetite [Unknown]
  - Discomfort [Unknown]
  - Headache [Unknown]
  - Nasopharyngitis [Unknown]
  - Somnolence [Unknown]

NARRATIVE: CASE EVENT DATE: 201410
